FAERS Safety Report 7789621-6 (Version None)
Quarter: 2011Q3

REPORT INFORMATION
  Report Type: 
  Country: None (occurrence: None)
  Receive Date: 20110930
  Receipt Date: 20110926
  Transmission Date: 20111222
  Serious: Yes (Life-Threatening, Hospitalization, Disabling)
  Sender: FDA-Public Use
  Company Number: JP-MERCK-1108USA03694

PATIENT
  Age: 85 Year
  Sex: Female

DRUGS (10)
  1. CLONAZEPAM [Concomitant]
     Route: 048
  2. PRAVASTATIN SODIUM [Concomitant]
     Route: 048
  3. ZYPREXA [Concomitant]
     Route: 048
  4. HYZAAR [Suspect]
     Route: 048
  5. SINGULAIR [Concomitant]
     Route: 048
  6. ZYPREXA [Concomitant]
     Route: 048
  7. MUCODYNE [Concomitant]
     Route: 048
  8. ALVESCO [Concomitant]
     Route: 055
  9. SIGMART [Concomitant]
     Route: 048
  10. BUP-4 [Concomitant]
     Route: 048

REACTIONS (4)
  - ALTERED STATE OF CONSCIOUSNESS [None]
  - SPINAL COMPRESSION FRACTURE [None]
  - PUBIS FRACTURE [None]
  - HYPONATRAEMIA [None]
